FAERS Safety Report 8588236-X (Version None)
Quarter: 2012Q3

REPORT INFORMATION
  Report Type: 
  Country: None (occurrence: None)
  Receive Date: 20120813
  Receipt Date: 20120806
  Transmission Date: 20120928
  Serious: Yes (Hospitalization, Disabling)
  Sender: FDA-Public Use
  Company Number: GB-US-EMD SERONO, INC.-7143797

PATIENT
  Sex: Female

DRUGS (1)
  1. REBIF [Suspect]
     Indication: RELAPSING-REMITTING MULTIPLE SCLEROSIS
     Route: 058
     Dates: start: 20120608, end: 20120716

REACTIONS (5)
  - DEPRESSION [None]
  - MUSCLE SPASMS [None]
  - EMOTIONAL DISTRESS [None]
  - CRYING [None]
  - MULTIPLE SCLEROSIS RELAPSE [None]
